FAERS Safety Report 4443105-1 (Version None)
Quarter: 2004Q3

REPORT INFORMATION
  Report Type: 
  Country: None (occurrence: None)
  Receive Date: 20040903
  Receipt Date: 20040628
  Transmission Date: 20050211
  Serious: Yes (Other)
  Sender: FDA-Public Use
  Company Number: 2004UW13365

PATIENT
  Age: 78 Year
  Sex: Female
  Weight: 58.0604 kg

DRUGS (12)
  1. CRESTOR [Suspect]
     Indication: BLOOD CHOLESTEROL INCREASED
     Dosage: 10 MG PO
     Route: 048
  2. IMDUR [Concomitant]
  3. ATENOLOL [Concomitant]
  4. DIOVAN [Concomitant]
  5. PLAVIX [Concomitant]
  6. RESTORIL [Concomitant]
  7. NITROSTAT [Concomitant]
  8. ZOLOFT [Concomitant]
  9. NORVASC [Concomitant]
  10. ATIVAN [Concomitant]
  11. FOLIC ACID [Concomitant]
  12. ZETIA [Concomitant]

REACTIONS (1)
  - DYSPHAGIA [None]
